FAERS Safety Report 19728241 (Version 2)
Quarter: 2021Q3

REPORT INFORMATION
  Report Type: Spontaneous
  Country: NL (occurrence: NL)
  Receive Date: 20210820
  Receipt Date: 20210820
  Transmission Date: 20211014
  Serious: Yes (Life-Threatening)
  Sender: FDA-Public Use
  Company Number: NL-TEVA-2021-NL-1943147

PATIENT
  Age: 60 Year
  Sex: Male
  Weight: 110 kg

DRUGS (4)
  1. AMITRIPTYLINE HCL TABLET 10MG / BRAND NAME NOT SPECIFIED [Concomitant]
     Active Substance: AMITRIPTYLINE HYDROCHLORIDE
     Dosage: 1DD, THERAPY START AND END DATE: ASKU, 10 MG
  2. RIZATRIPTAN TABLET 10MG / MAXALT TABLET 10MG [Concomitant]
     Dosage: ZN, 10 MG, THERAPY START AND END DATE: ASKU
     Route: 065
  3. METFORMINE TABLET  1000MG / BRAND NAME NOT SPECIFIED [Concomitant]
     Dosage: 2X 1000 MG, THERAPY START AND END DATE: ASKU
  4. ROSUVASTATINE TABLET 5MG / BRAND NAME NOT SPECIFIED [Suspect]
     Active Substance: ROSUVASTATIN
     Indication: HYPERCHOLESTEROLAEMIA
     Dosage: 5 MILLIGRAM DAILY;
     Dates: start: 20200901, end: 20210401

REACTIONS (1)
  - Hypoglycaemia [Recovered/Resolved]

NARRATIVE: CASE EVENT DATE: 20200907
